FAERS Safety Report 6340248-2 (Version None)
Quarter: 2009Q3

REPORT INFORMATION
  Report Type: 
  Country: None (occurrence: None)
  Receive Date: 20090902
  Receipt Date: 20090820
  Transmission Date: 20100115
  Serious: Yes (Hospitalization)
  Sender: FDA-Public Use
  Company Number: 1000008487

PATIENT
  Age: 87 Year
  Sex: Male
  Weight: 88 kg

DRUGS (1)
  1. MEMANTINE HCL [Suspect]
     Indication: DEMENTIA ALZHEIMER'S TYPE
     Dosage: 20 MG, ORAL
     Route: 048
     Dates: start: 20090603

REACTIONS (1)
  - SYNCOPE [None]
